FAERS Safety Report 7472297-5 (Version None)
Quarter: 2011Q2

REPORT INFORMATION
  Report Type: 
  Country: None (occurrence: None)
  Receive Date: 20110502
  Receipt Date: 20110421
  Transmission Date: 20111010
  Serious: Yes (Other)
  Sender: FDA-Public Use
  Company Number: 1000020380

PATIENT
  Age: 66 Year
  Sex: Female

DRUGS (5)
  1. COQ10 (UBIDECARENONE) (UBIDE,CARENONE) [Concomitant]
  2. FISH OIL (FISH OIL)(FISH OIL) [Concomitant]
  3. ASPIRIN (ACETYLSALICYLIC ACID) (81 MILLIGRAM, TABLETS) (ACETYLSALICYLI [Concomitant]
  4. FOLIC ACID (FOLIC ACID)(1 MILLIGRAM, TABLETS)(FOLIC ACID) [Concomitant]
  5. LEXAPRO [Suspect]
     Indication: DEPRESSION
     Dosage: 10 MG (10 MG,L IN 1 D),0RAL
     Route: 048
     Dates: start: 20020101

REACTIONS (2)
  - CATARACT [None]
  - GLAUCOMA [None]
